FAERS Safety Report 4441626-9 (Version None)
Quarter: 2004Q3

REPORT INFORMATION
  Report Type: 
  Country: None (occurrence: None)
  Receive Date: 20040907
  Receipt Date: 20040803
  Transmission Date: 20050211
  Serious: Yes (Hospitalization)
  Sender: FDA-Public Use
  Company Number: 200412541JP

PATIENT
  Age: 62 Year
  Sex: Male
  Weight: 50 kg

DRUGS (10)
  1. KETEK [Suspect]
     Indication: EMPHYSEMA
     Route: 048
     Dates: start: 20040716, end: 20040720
  2. KETEK [Suspect]
     Indication: SINUSITIS
     Route: 048
     Dates: start: 20040716, end: 20040720
  3. CLARITIN [Concomitant]
     Indication: PRURITUS
     Dosage: DOSE: 1TABLET
     Route: 048
     Dates: start: 20040621
  4. TAKEPRON [Concomitant]
     Indication: REFLUX OESOPHAGITIS
     Route: 048
     Dates: start: 20040109
  5. TANATRIL [Concomitant]
     Indication: HYPERTENSION
     Dosage: DOSE: 1TABLET
     Route: 048
     Dates: start: 20020422
  6. GOUTMALON [Concomitant]
     Indication: HYPERURICAEMIA
     Route: 048
     Dates: start: 20020420
  7. EPL CAP. [Concomitant]
     Indication: LIVER DISORDER
     Route: 048
     Dates: start: 20040109
  8. NACKLESS [Concomitant]
     Indication: HYPERTENSION
     Dosage: DOSE: 1.5TABLET
     Route: 048
     Dates: start: 20040519
  9. STRONG NEO-MINOPHAGEN C [Concomitant]
     Indication: HEPATIC FUNCTION ABNORMAL
     Dosage: DOSE: 2AMPOULE
     Route: 042
  10. OHNES [Concomitant]
     Indication: DYSPEPSIA
     Dosage: DOSE: 3TABLETS
     Route: 048
     Dates: start: 20040109

REACTIONS (5)
  - ADENOMYOSIS [None]
  - ALCOHOLISM [None]
  - HEPATITIS CHOLESTATIC [None]
  - HEPATITIS FULMINANT [None]
  - REFUSAL OF TREATMENT BY PATIENT [None]
